FAERS Safety Report 7526254-0 (Version None)
Quarter: 2011Q2

REPORT INFORMATION
  Report Type: 
  Country: None (occurrence: None)
  Receive Date: 20110603
  Receipt Date: 20110603
  Transmission Date: 20111010
  Serious: No
  Sender: FDA-Public Use
  Company Number: None

PATIENT
  Age: 70 Year
  Sex: Female
  Weight: 64.4108 kg

DRUGS (1)
  1. VESICARE [Suspect]
     Indication: PSYCHOMOTOR HYPERACTIVITY
     Dosage: 5 MG DAILY PO
     Route: 048
     Dates: start: 20110311, end: 20110315

REACTIONS (1)
  - VISION BLURRED [None]
